FAERS Safety Report 23973294 (Version 1)
Quarter: 2024Q2

REPORT INFORMATION
  Report Type: Spontaneous
  Country: GB (occurrence: GB)
  Receive Date: 20240613
  Receipt Date: 20240613
  Transmission Date: 20240716
  Serious: Yes (Hospitalization, Other)
  Sender: FDA-Public Use
  Company Number: GB-VIIV HEALTHCARE LIMITED-GB2024EME069091

PATIENT
  Sex: Female

DRUGS (2)
  1. TRUVADA [Suspect]
     Active Substance: EMTRICITABINE\TENOFOVIR DISOPROXIL FUMARATE
     Indication: Product used for unknown indication
     Dosage: 1 DF 200/245MG TAB 30
     Route: 065
  2. TIVICAY [Suspect]
     Active Substance: DOLUTEGRAVIR SODIUM
     Indication: Product used for unknown indication
     Dosage: 50 MG (TABLETS 30)
     Route: 065
     Dates: start: 20210105

REACTIONS (1)
  - Brain injury [Unknown]
